FAERS Safety Report 20531054 (Version 2)
Quarter: 2022Q2

REPORT INFORMATION
  Report Type: Report from Study
  Country: BR (occurrence: BR)
  Receive Date: 20220301
  Receipt Date: 20220523
  Transmission Date: 20220721
  Serious: Yes (Other)
  Sender: FDA-Public Use
  Company Number: BR-NOVARTISPH-NVSC2022BR026864

PATIENT
  Age: 33 Year
  Sex: Male
  Weight: 77 kg

DRUGS (3)
  1. OMNITROPE [Suspect]
     Active Substance: SOMATROPIN
     Indication: Factor I deficiency
     Dosage: 15 MG
     Route: 065
  2. OMNITROPE [Suspect]
     Active Substance: SOMATROPIN
     Dosage: 0.8 MG, QD
     Route: 058
     Dates: start: 20211105
  3. OMNITROPE [Suspect]
     Active Substance: SOMATROPIN
     Dosage: UNK
     Route: 065
     Dates: start: 20211116

REACTIONS (2)
  - Device malfunction [Unknown]
  - Incorrect dose administered by device [Unknown]

NARRATIVE: CASE EVENT DATE: 20211114
